FAERS Safety Report 7821209-0 (Version None)
Quarter: 2011Q4

REPORT INFORMATION
  Report Type: 
  Country: None (occurrence: None)
  Receive Date: 20111018
  Receipt Date: 20111012
  Transmission Date: 20120403
  Serious: Yes (Other)
  Sender: FDA-Public Use
  Company Number: CHPA2011US14049

PATIENT
  Age: 38 Year
  Sex: Female

DRUGS (6)
  1. ALCOHOL [Suspect]
     Indication: DEPRESSION
     Dosage: UNK, UNK
     Route: 048
     Dates: start: 20111011, end: 20111011
  2. EXCEDRIN (MIGRAINE) [Suspect]
     Indication: DEPRESSION
     Dosage: 100-200 CAPLETS, UNK
     Route: 048
     Dates: start: 20111011, end: 20111011
  3. EXCEDRIN (MIGRAINE) [Suspect]
     Indication: SUICIDAL IDEATION
  4. ALCOHOL [Suspect]
     Indication: SUICIDAL IDEATION
  5. VALIUM [Suspect]
     Indication: SUICIDAL IDEATION
  6. VALIUM [Suspect]
     Indication: DEPRESSION
     Dosage: UNK, UNK
     Route: 048
     Dates: start: 20111011, end: 20111011

REACTIONS (8)
  - SUICIDE ATTEMPT [None]
  - OFF LABEL USE [None]
  - OVERDOSE [None]
  - VOMITING [None]
  - CRYING [None]
  - GASTRIC LAVAGE [None]
  - DEAFNESS [None]
  - SUDDEN VISUAL LOSS [None]
